FAERS Safety Report 17265487 (Version 1)
Quarter: 2020Q3

REPORT INFORMATION
  Report Type: Other
  Country: GB (occurrence: GB)
  Receive Date: 20200114
  Receipt Date: 20200114
  Transmission Date: 20201104
  Serious: Yes (Hospitalization)
  Sender: FDA-Public Use
  Company Number: GB-CELLTRION INC.-2020GB017573

PATIENT

DRUGS (5)
  1. ACICLOVIR [Concomitant]
     Active Substance: ACYCLOVIR
     Dosage: 800 MG, DAILY
     Route: 048
     Dates: start: 20190821
  2. POLATUZUMAB VEDOTIN. [Suspect]
     Active Substance: POLATUZUMAB VEDOTIN
     Indication: LYMPHOMA
     Dosage: 135 MG EVERY 21 DAYS
     Route: 042
     Dates: start: 20190821
  3. SEPTRIN [Concomitant]
     Active Substance: SULFAMETHOXAZOLE\TRIMETHOPRIM
     Dosage: 1440 MG, 1/WEEK
     Route: 048
     Dates: start: 20190821
  4. BENDAMUSTINE [Suspect]
     Active Substance: BENDAMUSTINE
     Indication: LYMPHOMA
     Dosage: 175 MG, EVERY 21 DAYS
     Route: 042
     Dates: start: 20190821
  5. RITUXIMAB (UNKNOWN) [Suspect]
     Active Substance: RITUXIMAB
     Indication: LYMPHOMA
     Dosage: 700 MG, EVERY 21 DAYS
     Route: 042
     Dates: start: 20190820

REACTIONS (5)
  - Fall [Unknown]
  - Facial bones fracture [Unknown]
  - Cerebral haemorrhage [Unknown]
  - Underdose [Unknown]
  - Platelet count decreased [Unknown]

NARRATIVE: CASE EVENT DATE: 20191005
